FAERS Safety Report 9698042 (Version 1)
Quarter: 2013Q4

REPORT INFORMATION
  Report Type: Spontaneous
  Country: US (occurrence: US)
  Receive Date: 20131120
  Receipt Date: 20131120
  Transmission Date: 20140711
  Serious: No
  Sender: FDA-Public Use
  Company Number: US-B.I. PHARMACEUTICALS,INC./RIDGEFIELD-2013-BI-36715BP

PATIENT
  Age: 92 Year
  Sex: Male
  Weight: 76 kg

DRUGS (8)
  1. PRADAXA [Suspect]
     Indication: CEREBROVASCULAR ACCIDENT
     Dosage: 150 MG
     Route: 048
     Dates: start: 201304
  2. PANTOPRAZOLE [Concomitant]
     Indication: GASTROOESOPHAGEAL REFLUX DISEASE
     Dosage: 40 MG
     Route: 048
     Dates: start: 201304
  3. ENALAPRIL [Concomitant]
     Indication: HYPERTENSION
     Dosage: 2.5 MG
     Route: 048
  4. POTASSIUM CHLORIDE [Concomitant]
     Indication: ELECTROLYTE SUBSTITUTION THERAPY
     Dates: start: 201304
  5. FUROSEMIDE [Concomitant]
     Indication: FLUID RETENTION
     Dosage: 40 MG
     Route: 048
     Dates: start: 201304
  6. SIMVASTATIN [Concomitant]
     Dosage: 40 MG
     Route: 048
  7. ISOSORBIDE [Concomitant]
     Indication: CARDIAC DISORDER
     Dosage: 30 MG
     Route: 048
     Dates: start: 1993
  8. CARVEDILOL [Concomitant]
     Indication: HYPERTENSION
     Dosage: 3.125 MG
     Route: 048
     Dates: start: 201304

REACTIONS (4)
  - Fall [Recovered/Resolved]
  - Musculoskeletal pain [Recovered/Resolved]
  - Back pain [Not Recovered/Not Resolved]
  - Skeletal injury [Recovered/Resolved]
